FAERS Safety Report 9120950 (Version 2)
Quarter: 2013Q1

REPORT INFORMATION
  Report Type: Spontaneous
  Country: JP (occurrence: JP)
  Receive Date: 20130226
  Receipt Date: 20130306
  Transmission Date: 20140127
  Serious: No
  Sender: FDA-Public Use
  Company Number: JP-GLAXOSMITHKLINE-B0870138A

PATIENT
  Age: 30 Year
  Sex: Male

DRUGS (8)
  1. SAMTIREL [Suspect]
     Indication: PNEUMOCYSTIS JIROVECII PNEUMONIA
     Dosage: 750MG TWICE PER DAY
     Route: 048
     Dates: start: 20130208, end: 20130217
  2. MYCOSYST [Concomitant]
     Indication: OESOPHAGEAL CANDIDIASIS
     Dosage: 100MG PER DAY
     Route: 048
     Dates: start: 20130117
  3. BAKTAR [Concomitant]
     Indication: PNEUMOCYSTIS JIROVECII PNEUMONIA
     Dosage: 4IUAX THREE TIMES PER DAY
     Route: 048
     Dates: start: 20130125, end: 20130207
  4. PREDONINE [Concomitant]
     Indication: PNEUMOCYSTIS JIROVECII PNEUMONIA
     Dosage: 30MG TWICE PER DAY
     Route: 048
     Dates: start: 20130125, end: 20130129
  5. PREDONINE [Concomitant]
     Indication: PNEUMOCYSTIS JIROVECII PNEUMONIA
     Dosage: 15MG TWICE PER DAY
     Route: 048
     Dates: start: 20130130, end: 20130203
  6. PREDONINE [Concomitant]
     Indication: PNEUMOCYSTIS JIROVECII PNEUMONIA
     Dosage: 15MG PER DAY
     Route: 048
     Dates: start: 20130204, end: 20130215
  7. NEXIUM [Concomitant]
     Indication: PROPHYLAXIS
     Dosage: 20MG PER DAY
     Route: 048
     Dates: start: 20130125, end: 20130211
  8. GASTER D [Concomitant]
     Indication: PROPHYLAXIS
     Dosage: 20MG PER DAY
     Route: 048
     Dates: start: 20130212

REACTIONS (2)
  - White blood cell count decreased [Recovered/Resolved]
  - Platelet count decreased [Recovered/Resolved]
